FAERS Safety Report 14502250 (Version 2)
Quarter: 2018Q1

REPORT INFORMATION
  Report Type: Report from Study
  Country: US (occurrence: US)
  Receive Date: 20180208
  Receipt Date: 20180222
  Transmission Date: 20180509
  Serious: Yes (Death, Other)
  Sender: FDA-Public Use
  Company Number: US-AMGEN-USASL2018016255

PATIENT
  Age: 82 Year
  Sex: Male
  Weight: 67.12 kg

DRUGS (1)
  1. PROCRIT [Suspect]
     Active Substance: ERYTHROPOIETIN
     Indication: HAEMOGLOBIN DECREASED
     Dosage: UNK
     Route: 058
     Dates: start: 20170316, end: 20170907

REACTIONS (2)
  - Lung neoplasm malignant [Fatal]
  - Hospice care [Unknown]

NARRATIVE: CASE EVENT DATE: 20170918
